FAERS Safety Report 9647253 (Version 1)
Quarter: 2013Q4

REPORT INFORMATION
  Report Type: Spontaneous
  Country: US (occurrence: US)
  Receive Date: 20131027
  Receipt Date: 20131027
  Transmission Date: 20140711
  Serious: No
  Sender: FDA-Public Use
  Company Number: US-PURDUE-USA-2013-0107193

PATIENT
  Sex: Female

DRUGS (2)
  1. OXYCONTIN (NDA 22-272) [Suspect]
     Indication: FIBROMYALGIA
     Dosage: 40 MCG, Q12H
     Route: 048
  2. VICODIN [Concomitant]
     Indication: BREAKTHROUGH PAIN

REACTIONS (1)
  - Inadequate analgesia [Unknown]
